FAERS Safety Report 4721389-X (Version None)
Quarter: 2005Q3

REPORT INFORMATION
  Report Type: 
  Country: None (occurrence: None)
  Receive Date: 20050721
  Receipt Date: 20040802
  Transmission Date: 20060218
  Serious: No
  Sender: FDA-Public Use
  Company Number: US-BRISTOL-MYERS SQUIBB COMPANY-12657979

PATIENT
  Age: 76 Year
  Sex: Male
  Weight: 100 kg

DRUGS (6)
  1. COUMADIN [Suspect]
     Indication: PROPHYLAXIS
     Dosage: DOSAGE: 1/2 OF A 2.5MG TABLET AND A 2.5MG TABLET ALTERNATING DAILY
     Route: 048
  2. ALTACE [Concomitant]
  3. ZOCOR [Concomitant]
  4. ALLOPURINOL [Concomitant]
  5. HYDROCHLOROTHIAZIDE [Concomitant]
  6. POTASSIUM CHLORIDE [Concomitant]

REACTIONS (1)
  - RASH MACULAR [None]
